FAERS Safety Report 7552462-9 (Version None)
Quarter: 2011Q2

REPORT INFORMATION
  Report Type: 
  Country: None (occurrence: None)
  Receive Date: 20110616
  Receipt Date: 20110607
  Transmission Date: 20111010
  Serious: Yes (Hospitalization, Other)
  Sender: FDA-Public Use
  Company Number: US-CEPHALON-2011002341

PATIENT
  Sex: Male
  Weight: 68 kg

DRUGS (4)
  1. GABITRIL [Suspect]
     Route: 048
     Dates: start: 20060101, end: 20060101
  2. ASPIRIN [Concomitant]
     Indication: BACK PAIN
     Dates: start: 20060101
  3. ABILIFY [Concomitant]
     Indication: DEPRESSION
     Dates: start: 20040101
  4. LEXAPRO [Concomitant]
     Indication: DEPRESSION
     Dates: start: 20040101

REACTIONS (5)
  - CONVULSION [None]
  - LOSS OF CONSCIOUSNESS [None]
  - FOAMING AT MOUTH [None]
  - PSYCHOTIC DISORDER [None]
  - FALL [None]
